FAERS Safety Report 6530292-4 (Version None)
Quarter: 2009Q4

REPORT INFORMATION
  Report Type: 
  Country: None (occurrence: None)
  Receive Date: 20091231
  Receipt Date: 20090624
  Transmission Date: 20100525
  Serious: Yes (Hospitalization)
  Sender: FDA-Public Use
  Company Number: 2009029859

PATIENT

DRUGS (1)
  1. ACTIQ [Suspect]
     Indication: CANCER PAIN
     Dosage: BU
     Route: 002

REACTIONS (1)
  - HOSPITALISATION [None]
